FAERS Safety Report 7148916-X (Version None)
Quarter: 2010Q4

REPORT INFORMATION
  Report Type: 
  Country: None (occurrence: None)
  Receive Date: 20101209
  Receipt Date: 20101208
  Transmission Date: 20110411
  Serious: Yes (Death)
  Sender: FDA-Public Use
  Company Number: A0878947A

PATIENT
  Age: 57 Year
  Sex: Female

DRUGS (12)
  1. PROMACTA [Suspect]
     Dosage: 25MG SINGLE DOSE
     Route: 048
     Dates: start: 20100828
  2. KEPPRA [Concomitant]
  3. HYDROCODONE [Concomitant]
  4. BENZTROPINE MESYLATE [Concomitant]
  5. CALCIPOTRIENE [Concomitant]
  6. CIPROFLOXACIN [Concomitant]
  7. LACTULOSE [Concomitant]
  8. LEVETIRACETAM [Concomitant]
  9. NORFLOXACIN [Concomitant]
  10. PHENYTOIN [Concomitant]
  11. RISPERIDONE [Concomitant]
  12. DILANTIN [Concomitant]

REACTIONS (6)
  - CARDIAC ARREST [None]
  - CARDIO-RESPIRATORY ARREST [None]
  - DEPRESSED LEVEL OF CONSCIOUSNESS [None]
  - GASTRIC HAEMORRHAGE [None]
  - GASTROINTESTINAL HAEMORRHAGE [None]
  - HEART RATE DECREASED [None]
